FAERS Safety Report 19969821 (Version 1)
Quarter: 2021Q4

REPORT INFORMATION
  Report Type: Other
  Country: SE (occurrence: SE)
  Receive Date: 20211019
  Receipt Date: 20211019
  Transmission Date: 20220303
  Serious: Yes (Hospitalization)
  Sender: FDA-Public Use
  Company Number: SE-COLLEGIUM PHARMACEUTICAL, INC.-2021CGM01105

PATIENT
  Age: 61 Year
  Sex: Female

DRUGS (3)
  1. TAPENTADOL [Suspect]
     Active Substance: TAPENTADOL
     Indication: Pain management
     Dosage: UNK
     Dates: start: 202108, end: 202108
  2. ELIQUIS [Concomitant]
     Active Substance: APIXABAN
  3. TOCILIZUMAB [Concomitant]
     Active Substance: TOCILIZUMAB

REACTIONS (4)
  - Toxicity to various agents [Recovering/Resolving]
  - Loss of consciousness [Recovering/Resolving]
  - Somnolence [Recovering/Resolving]
  - Accidental overdose [Recovering/Resolving]

NARRATIVE: CASE EVENT DATE: 20210822
